FAERS Safety Report 8381345 (Version 3)
Quarter: 2013Q3

REPORT INFORMATION
  Report Type: Report from Study
  Country: MX (occurrence: MX)
  Receive Date: 20120131
  Receipt Date: 20130802
  Transmission Date: 20140515
  Serious: Yes (Other)
  Sender: FDA-Public Use
  Company Number: PHHY2011MX112290

PATIENT
  Age: 23 Year
  Sex: Male

DRUGS (3)
  1. TEGRETOL [Suspect]
     Indication: EPILEPSY
     Dosage: 2 DF, QD
     Dates: start: 200903
  2. TEGRETOL [Suspect]
     Dosage: 3 DF, UNK
     Dates: start: 20100814
  3. TEGRETOL [Suspect]
     Dosage: 2 DF, QD

REACTIONS (5)
  - Petit mal epilepsy [Recovered/Resolved]
  - Sleep disorder [Recovered/Resolved]
  - Stress [Recovered/Resolved]
  - Fatigue [Recovered/Resolved]
  - Convulsion [Recovered/Resolved]
